FAERS Safety Report 4388749-0 (Version None)
Quarter: 2004Q3

REPORT INFORMATION
  Report Type: 
  Country: None (occurrence: None)
  Receive Date: 20040701
  Receipt Date: 20040528
  Transmission Date: 20050211
  Serious: Yes (Other)
  Sender: FDA-Public Use
  Company Number: SE-GLAXOSMITHKLINE-B0334530A

PATIENT
  Age: 37 Year
  Sex: Female

DRUGS (7)
  1. ZINACEF [Suspect]
     Indication: PROPHYLAXIS
     Dosage: 1.5G THREE TIMES PER DAY
     Route: 065
     Dates: start: 20020313
  2. METRONIDAZOLE [Suspect]
     Dosage: 1.5G UNKNOWN
     Route: 065
     Dates: start: 20020313
  3. TIPAROL [Suspect]
     Route: 065
     Dates: start: 20020313
  4. ALVEDON [Suspect]
     Route: 065
     Dates: start: 20020313
  5. KETOGAN [Suspect]
     Route: 065
     Dates: start: 20020313
  6. VOLTAREN [Suspect]
     Route: 065
     Dates: start: 20020313
  7. LAXOBERAL [Suspect]
     Route: 065
     Dates: start: 20020313

REACTIONS (3)
  - COLITIS [None]
  - DIARRHOEA [None]
  - INCONTINENCE [None]
